FAERS Safety Report 5493791-2 (Version None)
Quarter: 2007Q4

REPORT INFORMATION
  Report Type: 
  Country: None (occurrence: None)
  Receive Date: 20071023
  Receipt Date: 20071017
  Transmission Date: 20080405
  Serious: Yes (Hospitalization)
  Sender: FDA-Public Use
  Company Number: AU-BOEHRINGER INGELHEIM PHARMACEUTICALS, INC.-2007-BP-22970AU

PATIENT
  Sex: Female

DRUGS (1)
  1. MOBIC [Suspect]
     Route: 048

REACTIONS (3)
  - ANKLE FRACTURE [None]
  - FALL [None]
  - OEDEMA PERIPHERAL [None]
